FAERS Safety Report 20589066 (Version 2)
Quarter: 2022Q1

REPORT INFORMATION
  Report Type: Spontaneous
  Country: FR (occurrence: FR)
  Receive Date: 20220314
  Receipt Date: 20220316
  Transmission Date: 20220423
  Serious: Yes (Death)
  Sender: FDA-Public Use
  Company Number: FR-CELGENE-FRA-20220303510

PATIENT
  Age: 80 Year
  Sex: Male
  Weight: 65 kg

DRUGS (3)
  1. REVLIMID [Suspect]
     Active Substance: LENALIDOMIDE
     Indication: Plasma cell myeloma
     Route: 048
     Dates: start: 20210827, end: 20220114
  2. DARZALEX FASPRO [Suspect]
     Active Substance: DARATUMUMAB\HYALURONIDASE-FIHJ
     Indication: Plasma cell myeloma
     Dosage: C6 ; CYCLICAL
     Route: 058
     Dates: start: 20210827, end: 20220114
  3. DEXAMETHASONE [Suspect]
     Active Substance: DEXAMETHASONE
     Indication: Plasma cell myeloma
     Dosage: C6 ; CYCLICAL
     Route: 048
     Dates: start: 20210827, end: 20220114

REACTIONS (3)
  - COVID-19 pneumonia [Fatal]
  - Vaccination failure [Fatal]
  - Drug ineffective [Fatal]

NARRATIVE: CASE EVENT DATE: 20220121
